FAERS Safety Report 8534105-0 (Version None)
Quarter: 2012Q3

REPORT INFORMATION
  Report Type: 
  Country: None (occurrence: None)
  Receive Date: 20120724
  Receipt Date: 20120717
  Transmission Date: 20120928
  Serious: Yes (Other)
  Sender: FDA-Public Use
  Company Number: AU-ROCHE-1090932

PATIENT
  Age: 82 Year
  Sex: Male

DRUGS (1)
  1. METALYSE [Suspect]
     Indication: THROMBOLYSIS
     Dates: start: 20120704, end: 20120704

REACTIONS (3)
  - DRUG INEFFECTIVE [None]
  - PRODUCT QUALITY ISSUE [None]
  - ELECTROCARDIOGRAM ST SEGMENT ELEVATION [None]
